FAERS Safety Report 8610025-8 (Version None)
Quarter: 2012Q3

REPORT INFORMATION
  Report Type: 
  Country: None (occurrence: None)
  Receive Date: 20120822
  Receipt Date: 20120719
  Transmission Date: 20120928
  Serious: Yes (Other)
  Sender: FDA-Public Use
  Company Number: JP-009507513-1207JPN007954

PATIENT

DRUGS (4)
  1. PEG-INTRON [Suspect]
     Indication: HEPATITIS C
     Dosage: 1.5MCG/KG/WEEK
     Route: 058
     Dates: start: 20120613
  2. REBETOL [Suspect]
     Indication: HEPATITIS C
     Route: 048
     Dates: start: 20120613
  3. TELAVIC [Suspect]
     Indication: HEPATITIS C
     Route: 048
     Dates: start: 20120613, end: 20120703
  4. TELAVIC [Suspect]
     Route: 048
     Dates: start: 20120704

REACTIONS (4)
  - DECREASED APPETITE [None]
  - BLOOD CREATININE INCREASED [None]
  - MALAISE [None]
  - BLOOD UREA INCREASED [None]
